FAERS Safety Report 5455837-7 (Version None)
Quarter: 2007Q3

REPORT INFORMATION
  Report Type: 
  Country: None (occurrence: None)
  Receive Date: 20070918
  Receipt Date: 20070702
  Transmission Date: 20080115
  Serious: No
  Sender: FDA-Public Use
  Company Number: US-ASTRAZENECA-2006UW23011

PATIENT
  Age: 42 Year
  Sex: Female
  Weight: 150 kg

DRUGS (5)
  1. SEROQUEL [Suspect]
     Indication: DEPRESSION
     Dosage: 800 MG TO 1100 MG
     Route: 048
     Dates: start: 20020101, end: 20060101
  2. ABILIFY [Concomitant]
     Dates: start: 20070101
  3. GEODON [Concomitant]
     Dates: start: 20060101
  4. RISPERDAL [Concomitant]
     Dates: start: 20020101
  5. ZYPREXA [Concomitant]
     Dates: start: 20050101, end: 20060101

REACTIONS (2)
  - DEPRESSED LEVEL OF CONSCIOUSNESS [None]
  - DIABETES MELLITUS [None]
